FAERS Safety Report 9802974 (Version 1)
Quarter: 2014Q1

REPORT INFORMATION
  Report Type: Spontaneous
  Country: FR (occurrence: None)
  Receive Date: 20140102
  Receipt Date: 20140102
  Transmission Date: 20141002
  Serious: Yes (Hospitalization)
  Sender: FDA-Public Use
  Company Number: 2050021

PATIENT
  Age: 37 Year
  Sex: Female
  Weight: 54 kg

DRUGS (1)
  1. ATRACURIUM BESILATE [Suspect]
     Route: 042
     Dates: start: 20120106, end: 20120106

REACTIONS (4)
  - Anxiety [None]
  - Apnoea [None]
  - Drug administration error [None]
  - Somnolence [None]
